FAERS Safety Report 4387935-3 (Version None)
Quarter: 2004Q2

REPORT INFORMATION
  Report Type: 
  Country: None (occurrence: None)
  Receive Date: 20040607
  Receipt Date: 20040109
  Transmission Date: 20050107
  Serious: Yes (Disabling)
  Sender: FDA-Public Use
  Company Number: 355691

PATIENT
  Age: 17 Year
  Sex: Male
  Weight: 72.6 kg

DRUGS (3)
  1. ACCUTANE [Suspect]
     Indication: ACNE
     Dosage: 40 MG  2 PER DAY  ORAL
     Route: 048
     Dates: start: 20001121, end: 20001228
  2. ACCUTANE [Suspect]
     Indication: SCAR
     Dosage: 40 MG  2 PER DAY  ORAL
     Route: 048
     Dates: start: 20001121, end: 20001228
  3. PROVENTIL [Concomitant]

REACTIONS (4)
  - ANXIETY [None]
  - COLITIS ULCERATIVE [None]
  - PAIN [None]
  - RECTAL HAEMORRHAGE [None]
